FAERS Safety Report 5377995-5 (Version None)
Quarter: 2007Q2

REPORT INFORMATION
  Report Type: 
  Country: None (occurrence: None)
  Receive Date: 20070629
  Receipt Date: 20070611
  Transmission Date: 20071010
  Serious: Yes (Hospitalization)
  Sender: FDA-Public Use
  Company Number: 4914

PATIENT
  Age: 30 Month
  Sex: Female

DRUGS (1)
  1. LEVOTHYROXINE SODIUM [Suspect]

REACTIONS (9)
  - DEHYDRATION [None]
  - DIARRHOEA [None]
  - FLUSHING [None]
  - HYPERTHYROIDISM [None]
  - LETHARGY [None]
  - MENTAL STATUS CHANGES [None]
  - PYREXIA [None]
  - TACHYCARDIA [None]
  - VOMITING [None]
